FAERS Safety Report 7477708-7 (Version None)
Quarter: 2011Q2

REPORT INFORMATION
  Report Type: 
  Country: None (occurrence: None)
  Receive Date: 20110513
  Receipt Date: 20110428
  Transmission Date: 20111010
  Serious: No
  Sender: FDA-Public Use
  Company Number: US-B.I. PHARMACEUTICALS,INC./RIDGEFIELD-2011-BP-11992BP

PATIENT
  Sex: Female

DRUGS (7)
  1. VICODIN [Concomitant]
     Indication: ARTHRITIS
  2. CALCIUM [Concomitant]
  3. TRAZODONE HCL [Concomitant]
  4. VITAMIN D [Concomitant]
  5. PRADAXA [Suspect]
     Indication: ATRIAL FIBRILLATION
     Dosage: 300 MG
     Route: 048
     Dates: start: 20110105, end: 20110114
  6. SYNTHROID [Concomitant]
     Indication: HYPOTHYROIDISM
  7. METOPROLOL SUCCINATE [Concomitant]
     Indication: HYPERTENSION

REACTIONS (4)
  - RASH [None]
  - NAUSEA [None]
  - PALPITATIONS [None]
  - HYPERTENSION [None]
